FAERS Safety Report 8173770-7 (Version None)
Quarter: 2012Q1

REPORT INFORMATION
  Report Type: 
  Country: None (occurrence: None)
  Receive Date: 20120224
  Receipt Date: 20120217
  Transmission Date: 20120608
  Serious: Yes (Hospitalization)
  Sender: FDA-Public Use
  Company Number: A0966357A

PATIENT
  Sex: Male

DRUGS (1)
  1. SODIUM FLUORIDE + POTASSIUM NITRATE (FORMULATION UNKNOWN )(SODIUM FLUO [Suspect]
     Indication: DENTAL CARE
     Dates: start: 20120217

REACTIONS (2)
  - HYPERSENSITIVITY [None]
  - ORAL MUCOSAL ERUPTION [None]
